FAERS Safety Report 13353072 (Version 1)
Quarter: 2017Q1

REPORT INFORMATION
  Report Type: Spontaneous
  Country: US (occurrence: US)
  Receive Date: 20170321
  Receipt Date: 20170321
  Transmission Date: 20170429
  Serious: Yes (Other)
  Sender: FDA-Public Use
  Company Number: US-JNJCP-30000375628

PATIENT
  Sex: Female
  Weight: 79 kg

DRUGS (1)
  1. CLEAN AND CLEAR ADVANTAGE 3 IN 1 EXFOLIATING [Suspect]
     Active Substance: BENZOYL PEROXIDE
     Indication: REMOVAL OF INERT MATTER FROM SKIN OR SUBCUTANEOUS TISSUE
     Dosage: QUARTER SIZE AMOUNT ONCE OR TWICE PER DAY THEN ONCE PER DAY
     Route: 061
     Dates: start: 20161231

REACTIONS (9)
  - Application site pain [Recovering/Resolving]
  - Application site cyst [Recovering/Resolving]
  - Application site dryness [Recovering/Resolving]
  - Application site acne [Recovering/Resolving]
  - Application site swelling [Recovering/Resolving]
  - Application site rash [Recovering/Resolving]
  - Application site reaction [Recovering/Resolving]
  - Drug ineffective [Unknown]
  - Application site urticaria [Recovering/Resolving]
